FAERS Safety Report 12509116 (Version 1)
Quarter: 2016Q2

REPORT INFORMATION
  Report Type: Spontaneous
  Country: FR (occurrence: FR)
  Receive Date: 20160629
  Receipt Date: 20160629
  Transmission Date: 20160815
  Serious: Yes (Hospitalization)
  Sender: FDA-Public Use
  Company Number: FR-PFIZER INC-2016317066

PATIENT
  Age: 9 Year
  Sex: Male
  Weight: 86 kg

DRUGS (6)
  1. GENOTONORM [Suspect]
     Active Substance: SOMATROPIN
     Indication: PRADER-WILLI SYNDROME
     Dosage: 0.4 MG, DAILY
     Route: 058
     Dates: start: 20160215
  2. GENOTONORM [Suspect]
     Active Substance: SOMATROPIN
     Dosage: 0.6 MG, DAILY
     Route: 058
  3. GENOTONORM [Suspect]
     Active Substance: SOMATROPIN
     Dosage: UNK
     Route: 058
     Dates: start: 20160302
  4. GENOTONORM [Suspect]
     Active Substance: SOMATROPIN
     Dosage: 0.8 MG, DAILY
     Route: 058
  5. GENOTONORM [Suspect]
     Active Substance: SOMATROPIN
     Dosage: 1 MG, DAILY (TO BE TAKEN 6 DAYS OUT OF 7)
     Route: 058
     Dates: end: 20160229
  6. GENOTONORM [Suspect]
     Active Substance: SOMATROPIN
     Dosage: FROM 0.2 MG TO 1 MG WITHIN 3 DAYS

REACTIONS (7)
  - Injection site haematoma [Unknown]
  - Oedema peripheral [Recovered/Resolved]
  - Flushing [Recovered/Resolved]
  - Asthenia [Recovered/Resolved]
  - Headache [Unknown]
  - Abdominal pain [Unknown]
  - Insomnia [Unknown]

NARRATIVE: CASE EVENT DATE: 2016
